FAERS Safety Report 8459657-0 (Version None)
Quarter: 2012Q2

REPORT INFORMATION
  Report Type: 
  Country: None (occurrence: None)
  Receive Date: 20120622
  Receipt Date: 20120613
  Transmission Date: 20120825
  Serious: Yes (Other)
  Sender: FDA-Public Use
  Company Number: BR-JNJFOC-20111010597

PATIENT
  Sex: Female
  Weight: 58 kg

DRUGS (9)
  1. FLEBOCORTID [Concomitant]
     Indication: PREMEDICATION
     Route: 065
  2. CELEBREX [Concomitant]
     Indication: ANTIINFLAMMATORY THERAPY
     Dosage: THE USE IS SPORADIC, IT IS NOT CONTINUOUS
     Route: 065
  3. REMICADE [Suspect]
     Indication: RHEUMATOID ARTHRITIS
     Route: 042
     Dates: start: 20061206
  4. FLEBOCORTID [Concomitant]
     Indication: PRURITUS
     Route: 065
  5. PREDNISONE TAB [Concomitant]
     Indication: ANTIINFLAMMATORY THERAPY
     Route: 048
  6. FLEBOCORTID [Concomitant]
     Indication: HYPERSENSITIVITY
     Route: 065
  7. DICLOFENAC SODIUM [Concomitant]
     Indication: ANTIINFLAMMATORY THERAPY
     Route: 048
  8. ALL OTHER THERAPEUTICS [Concomitant]
     Indication: HYPERSENSITIVITY
     Dosage: THE USE IS NOT CONTINUOUS
     Route: 065
  9. ALENDRONATE SODIUM [Concomitant]
     Indication: OSTEOPOROSIS
     Dosage: THE TREATMENT IS NOT CONTINUOUS
     Route: 065

REACTIONS (2)
  - SJOGREN'S SYNDROME [None]
  - SALIVARY GLAND ADENOMA [None]
